FAERS Safety Report 15701868 (Version 1)
Quarter: 2018Q4

REPORT INFORMATION
  Report Type: Spontaneous
  Country: US (occurrence: US)
  Receive Date: 20181208
  Receipt Date: 20181208
  Transmission Date: 20190205
  Serious: No
  Sender: FDA-Public Use
  Company Number: US-JNJFOC-20181127771

PATIENT
  Sex: Male

DRUGS (1)
  1. DARZALEX [Suspect]
     Active Substance: DARATUMUMAB
     Indication: LYMPHOCYTIC LEUKAEMIA
     Route: 042

REACTIONS (4)
  - Flushing [Unknown]
  - Infusion related reaction [Unknown]
  - Product use in unapproved indication [Unknown]
  - Off label use [Unknown]
